FAERS Safety Report 9513411 (Version 1)
Quarter: 2013Q3

REPORT INFORMATION
  Report Type: Spontaneous
  Country: US (occurrence: US)
  Receive Date: 20130910
  Receipt Date: 20130910
  Transmission Date: 20140515
  Serious: No
  Sender: FDA-Public Use
  Company Number: US-TARO-2012P1054182

PATIENT
  Age: 63 Year
  Sex: Female

DRUGS (4)
  1. WARFARIN SODIUM TABLETS USP 2MG [Suspect]
     Route: 048
     Dates: start: 200502, end: 200809
  2. WARFARIN SODIUM TABLETS USP 2MG [Suspect]
     Route: 048
     Dates: start: 200812
  3. LEVOXYL [Concomitant]
  4. COREG [Concomitant]

REACTIONS (1)
  - International normalised ratio fluctuation [Not Recovered/Not Resolved]
